FAERS Safety Report 5879824-X (Version None)
Quarter: 2008Q3

REPORT INFORMATION
  Report Type: 
  Country: None (occurrence: None)
  Receive Date: 20080912
  Receipt Date: 20080829
  Transmission Date: 20090109
  Serious: Yes (Other)
  Sender: FDA-Public Use
  Company Number: DE-GENENTECH-267222

PATIENT
  Sex: Male

DRUGS (1)
  1. XOLAIR [Suspect]
     Indication: DRUG USE FOR UNKNOWN INDICATION
     Dosage: 300 MG, 1/MONTH
     Route: 058
     Dates: start: 20080205, end: 20080701

REACTIONS (1)
  - ALLERGIC GRANULOMATOUS ANGIITIS [None]
